FAERS Safety Report 6737541-8 (Version None)
Quarter: 2010Q2

REPORT INFORMATION
  Report Type: 
  Country: None (occurrence: None)
  Receive Date: 20100524
  Receipt Date: 20100512
  Transmission Date: 20101027
  Serious: Yes (Other)
  Sender: FDA-Public Use
  Company Number: FR-JNJFOC-20100505910

PATIENT

DRUGS (1)
  1. KETOCONAZOLE [Suspect]
     Indication: PITUITARY-DEPENDENT CUSHING'S SYNDROME

REACTIONS (5)
  - DIARRHOEA [None]
  - DRUG INTOLERANCE [None]
  - GAMMA-GLUTAMYLTRANSFERASE INCREASED [None]
  - NAUSEA [None]
  - OFF LABEL USE [None]
